FAERS Safety Report 14852310 (Version 3)
Quarter: 2019Q1

REPORT INFORMATION
  Report Type: Spontaneous
  Country: US (occurrence: US)
  Receive Date: 20180507
  Receipt Date: 20190306
  Transmission Date: 20190417
  Serious: No
  Sender: FDA-Public Use
  Company Number: US-PFIZER INC-2018181309

PATIENT
  Age: 36 Year
  Sex: Male

DRUGS (4)
  1. FLUOROMETHOLONE ACETATE [Concomitant]
     Active Substance: FLUOROMETHOLONE ACETATE
     Indication: BLEPHARITIS
     Dosage: UNK, 2X/DAY
     Dates: start: 20170405
  2. EUCRISA [Suspect]
     Active Substance: CRISABOROLE
     Indication: BLEPHARITIS
     Dosage: UNK, 2X/DAY
     Route: 061
  3. TACROLIMUS. [Concomitant]
     Active Substance: TACROLIMUS
     Indication: BLEPHARITIS
     Dosage: UNK, 2X/DAY
     Dates: start: 20170426
  4. ELIDEL [Concomitant]
     Active Substance: PIMECROLIMUS
     Indication: BLEPHARITIS
     Dosage: UNK, 2X/DAY
     Dates: start: 20161122

REACTIONS (2)
  - Skin irritation [Recovered/Resolved]
  - Application site pain [Recovered/Resolved]

NARRATIVE: CASE EVENT DATE: 2018
